FAERS Safety Report 9366690 (Version 1)
Quarter: 2013Q2

REPORT INFORMATION
  Report Type: Spontaneous
  Country: US (occurrence: US)
  Receive Date: 20130625
  Receipt Date: 20130625
  Transmission Date: 20140414
  Serious: No
  Sender: FDA-Public Use
  Company Number: US-PFIZER INC-2013186818

PATIENT
  Age: 80 Year
  Sex: Female
  Weight: 68.03 kg

DRUGS (2)
  1. FLECTOR [Suspect]
     Indication: PAIN
     Dosage: UNK, ONCE A DAY
     Route: 061
     Dates: start: 2012, end: 2012
  2. AMLODIPINE [Concomitant]
     Indication: HYPERTENSION
     Dosage: 5 MG, UNK

REACTIONS (5)
  - Application site reaction [Not Recovered/Not Resolved]
  - Application site pruritus [Not Recovered/Not Resolved]
  - Application site vesicles [Not Recovered/Not Resolved]
  - Body height decreased [Unknown]
  - Drug ineffective [Unknown]
